FAERS Safety Report 7806457-8 (Version None)
Quarter: 2011Q4

REPORT INFORMATION
  Report Type: 
  Country: None (occurrence: None)
  Receive Date: 20111011
  Receipt Date: 20110929
  Transmission Date: 20120403
  Serious: Yes (Hospitalization, Other)
  Sender: FDA-Public Use
  Company Number: JP-PFIZER INC-2011240182

PATIENT
  Age: 71 Year
  Sex: Female
  Weight: 56 kg

DRUGS (5)
  1. AVASTIN [Concomitant]
     Indication: COLORECTAL CANCER
     Dosage: 5 MG/KG, UNK
     Route: 041
     Dates: start: 20110105, end: 20110105
  2. FLUOROURACIL [Concomitant]
     Dosage: 3408 MG/BODY/D1-2 (2400 MG/M2/D1-2)
     Route: 041
     Dates: start: 20110105, end: 20110202
  3. CAMPTOSAR [Suspect]
     Indication: COLORECTAL CANCER
     Dosage: 213 MG/BODY (150 MG/M2)
     Route: 041
     Dates: start: 20110105, end: 20110202
  4. FLUOROURACIL [Concomitant]
     Indication: COLORECTAL CANCER
     Dosage: 568 MG/BODY (400 MG/M2)
     Route: 040
     Dates: start: 20110105, end: 20110202
  5. LEVOLEUCOVORIN CALCIUM [Concomitant]
     Indication: COLORECTAL CANCER
     Dosage: 284 MG/BODY (200 MG/M2)
     Route: 041
     Dates: start: 20110105, end: 20110202

REACTIONS (2)
  - URINARY TRACT INFECTION [None]
  - DIARRHOEA [None]
